FAERS Safety Report 7312611-4 (Version None)
Quarter: 2011Q1

REPORT INFORMATION
  Report Type: 
  Country: None (occurrence: None)
  Receive Date: 20110224
  Receipt Date: 20100824
  Transmission Date: 20110831
  Serious: No
  Sender: FDA-Public Use
  Company Number: US-MYLANLABS-2010S1015455

PATIENT
  Age: 85 Year
  Sex: Female

DRUGS (2)
  1. LANOXIN [Concomitant]
     Indication: CARDIAC DISORDER
  2. ATENOLOL [Suspect]
     Indication: CARDIAC DISORDER
     Route: 048

REACTIONS (2)
  - REACTION TO DRUG EXCIPIENTS [None]
  - MALAISE [None]
